FAERS Safety Report 18964962 (Version 2)
Quarter: 2021Q1

REPORT INFORMATION
  Report Type: Spontaneous
  Country: FR (occurrence: FR)
  Receive Date: 20210303
  Receipt Date: 20210325
  Transmission Date: 20210420
  Serious: Yes (Hospitalization)
  Sender: FDA-Public Use
  Company Number: NVSC2021FR043485

PATIENT
  Age: 8 Year
  Sex: Female
  Weight: 17.3 kg

DRUGS (32)
  1. VENETOCLAX. [Suspect]
     Active Substance: VENETOCLAX
     Indication: NEUROBLASTOMA
     Dosage: 120 MG, QD,(TABLET FOR ORAL SUSPENSION X 5DAYS EVERY 2 DAYS )
     Route: 048
     Dates: start: 20200706, end: 20200706
  2. VENETOCLAX. [Suspect]
     Active Substance: VENETOCLAX
     Dosage: 250 MG, QD,(TABLET FOR ORAL SUSPENSION X 9 DAYS EVERY 14 DAYS )
     Route: 048
     Dates: start: 20200730, end: 20200808
  3. VENETOCLAX. [Suspect]
     Active Substance: VENETOCLAX
     Dosage: 250 MG, QD,(TABLET FOR ORAL SUSPENSION X 9 DAYS EVERY 14 DAYS )
     Route: 048
     Dates: start: 20210119
  4. ALLOPURINOL. [Concomitant]
     Active Substance: ALLOPURINOL
     Indication: PROPHYLAXIS
     Dosage: 100 MG,QD
     Route: 048
     Dates: start: 20200708, end: 20200713
  5. ATARAX [Concomitant]
     Active Substance: HYDROXYZINE HYDROCHLORIDE
     Indication: PROPHYLAXIS OF NAUSEA AND VOMITING
     Dosage: 10 MG,QD
     Route: 042
     Dates: start: 20200707
  6. FORTUM [Concomitant]
     Active Substance: CEFTAZIDIME
     Indication: FEBRILE NEUTROPENIA
     Dosage: 1950MG (1950 MG)
     Route: 042
     Dates: start: 20200718, end: 20200726
  7. PENTACARINAT [Concomitant]
     Active Substance: PENTAMIDINE ISETHIONATE
     Indication: INFECTION PROPHYLAXIS
     Dosage: 300 MG,QD
     Route: 048
     Dates: start: 20210120, end: 20210120
  8. TOPOTECAN HYDROCHLORIDE. [Suspect]
     Active Substance: TOPOTECAN HYDROCHLORIDE
     Indication: REFRACTORY CANCER
     Dosage: 0.52 MG
     Route: 042
     Dates: start: 20210119
  9. VANCOMYCIN [Concomitant]
     Active Substance: VANCOMYCIN
     Dosage: 650 MG, QD
     Route: 042
     Dates: start: 20200720, end: 20200726
  10. VENETOCLAX. [Suspect]
     Active Substance: VENETOCLAX
     Dosage: 250 MG, QD,(TABLET FOR ORAL SUSPENSION X 9 DAYS EVERY 14 DAYS )
     Route: 048
     Dates: start: 20201102
  11. VENETOCLAX. [Suspect]
     Active Substance: VENETOCLAX
     Dosage: 250 MG, QD (TABLET FOR ORAL SUSPENSIONX 9 DAYS EVERY 14 DAYS)
     Route: 048
     Dates: start: 20201007, end: 20201016
  12. LOVENOX [Concomitant]
     Active Substance: ENOXAPARIN SODIUM
     Dosage: DOSE 1000 IU/J
     Route: 042
     Dates: start: 20201013
  13. SPASFON LYOC [Concomitant]
     Active Substance: PHLOROGLUCINOL
     Indication: ABDOMINAL PAIN
     Dosage: 160 MG, QD
     Route: 048
     Dates: start: 20200828
  14. VENETOCLAX. [Suspect]
     Active Substance: VENETOCLAX
     Dosage: 250 MG, QD (TABLET FOR ORAL SUSPENSION X 9 DAYS EVERY 14 DAYS )
     Route: 048
     Dates: start: 20200824
  15. LENOGRASTIM [Concomitant]
     Active Substance: LENOGRASTIM
     Dosage: 80 UG, QD
     Route: 058
     Dates: start: 20210125, end: 20210210
  16. INNOHEP [Concomitant]
     Active Substance: TINZAPARIN SODIUM
     Dosage: 3000 IU
     Route: 058
     Dates: start: 20200717
  17. ENDOXAN [Suspect]
     Active Substance: CYCLOPHOSPHAMIDE
     Indication: RECURRENT CANCER
     Dosage: 250 MG/M2 (5DAYS EVERY 21 DAYS)
     Route: 042
     Dates: start: 20200708
  18. FORTUM [Concomitant]
     Active Substance: CEFTAZIDIME
     Dosage: 2100MG (2100 MG)
     Route: 042
     Dates: start: 20201017
  19. TOPOTECAN HYDROCHLORIDE. [Suspect]
     Active Substance: TOPOTECAN HYDROCHLORIDE
     Indication: NEUROBLASTOMA
     Dosage: 0.75 UNK,(X5DAYS EVERY 21 DAYS)
     Route: 042
     Dates: start: 20200708
  20. ENDOXAN [Suspect]
     Active Substance: CYCLOPHOSPHAMIDE
     Dosage: 175 MG
     Route: 042
     Dates: start: 20210119
  21. VENETOCLAX. [Suspect]
     Active Substance: VENETOCLAX
     Dosage: 250 MG, QD,(TABLET FOR ORAL SUSPENSION X 9 DAYS EVERY 14 DAYS)
     Route: 048
     Dates: start: 20200914
  22. AMIKACIN. [Concomitant]
     Active Substance: AMIKACIN
     Indication: FEBRILE NEUTROPENIA
     Dosage: 250 MG,QD
     Route: 042
     Dates: start: 20201016
  23. FORTUM [Concomitant]
     Active Substance: CEFTAZIDIME
     Indication: FEBRILE BONE MARROW APLASIA
     Dosage: 2100 MG
     Route: 042
     Dates: start: 20200808, end: 20200816
  24. VANCOMYCIN [Concomitant]
     Active Substance: VANCOMYCIN
     Indication: FEBRILE NEUTROPENIA
     Dosage: 160 MG,QD
     Route: 042
     Dates: start: 20200720, end: 20200721
  25. ENDOXAN [Suspect]
     Active Substance: CYCLOPHOSPHAMIDE
     Indication: NEUROBLASTOMA
     Dosage: UNK (PAST MEDICATION)
     Route: 065
     Dates: start: 20160806, end: 20161021
  26. VENETOCLAX. [Suspect]
     Active Substance: VENETOCLAX
     Dosage: 250 MG, QD,(TABLET FOR ORAL SUSPENSION)
     Route: 048
     Dates: start: 20200707, end: 20200707
  27. ZOVIRAX [Concomitant]
     Active Substance: ACYCLOVIR
     Indication: OPHTHALMIC HERPES SIMPLEX
     Dosage: 540 MG
     Route: 042
     Dates: start: 20201021
  28. AMIKACIN. [Concomitant]
     Active Substance: AMIKACIN
     Dosage: 250 MG, QD
     Route: 042
     Dates: start: 20200808, end: 20200810
  29. VOGALENE [Concomitant]
     Active Substance: METOPIMAZINE
     Indication: ABDOMINAL INFECTION
     Dosage: 15 MG
     Route: 054
     Dates: start: 20210114, end: 20210116
  30. LOVENOX [Concomitant]
     Active Substance: ENOXAPARIN SODIUM
     Indication: VENA CAVA THROMBOSIS
     Dosage: 1 UNK,QD (DOSE 1000 IU/J)
     Route: 042
     Dates: start: 20201013
  31. LENOGRASTIM [Concomitant]
     Active Substance: LENOGRASTIM
     Indication: PROPHYLAXIS
     Dosage: 80 UG,QD
     Route: 058
     Dates: start: 20210123, end: 20210131
  32. INNOHEP [Concomitant]
     Active Substance: TINZAPARIN SODIUM
     Indication: THROMBOSIS
     Dosage: 3000 UNK,QD
     Route: 058
     Dates: start: 20200717

REACTIONS (1)
  - Febrile neutropenia [Recovered/Resolved]

NARRATIVE: CASE EVENT DATE: 20210128
